FAERS Safety Report 9779258 (Version 1)
Quarter: 2013Q4

REPORT INFORMATION
  Report Type: Spontaneous
  Country: US (occurrence: US)
  Receive Date: 20131223
  Receipt Date: 20131223
  Transmission Date: 20140711
  Serious: Yes (Other)
  Sender: FDA-Public Use
  Company Number: US-PFIZER INC-2013365116

PATIENT
  Age: 56 Year
  Sex: Female
  Weight: 56.69 kg

DRUGS (3)
  1. LYRICA [Suspect]
     Indication: FIBROMYALGIA
     Dosage: 75 MG, 2X/DAY
     Route: 048
     Dates: start: 2011
  2. ASPIRIN [Concomitant]
     Dosage: UNK
  3. NAPROXEN [Concomitant]
     Indication: PAIN
     Dosage: 500 MG, 2X/DAY

REACTIONS (1)
  - Eye disorder [Unknown]
